FAERS Safety Report 4867459-7 (Version None)
Quarter: 2005Q4

REPORT INFORMATION
  Report Type: 
  Country: None (occurrence: None)
  Receive Date: 20051227
  Receipt Date: 20051227
  Transmission Date: 20060501
  Serious: No
  Sender: FDA-Public Use
  Company Number: None

PATIENT
  Sex: Female
  Weight: 71.6683 kg

DRUGS (1)
  1. VYTORIN [Suspect]
     Indication: BLOOD CHOLESTEROL INCREASED
     Dosage: 1 TABLET  MORNING  PO
     Route: 048
     Dates: start: 20050929, end: 20051127

REACTIONS (3)
  - AMNESIA [None]
  - FAECAL INCONTINENCE [None]
  - HAIR TEXTURE ABNORMAL [None]
